FAERS Safety Report 7713506-4 (Version None)
Quarter: 2011Q3

REPORT INFORMATION
  Report Type: 
  Country: None (occurrence: None)
  Receive Date: 20110826
  Receipt Date: 20110822
  Transmission Date: 20111222
  Serious: Yes (Death, Other)
  Sender: FDA-Public Use
  Company Number: MX-SANOFI-AVENTIS-2011SA053923

PATIENT
  Age: 75 Year
  Sex: Male

DRUGS (2)
  1. IRBESARTAN AND HYDROCHLOROTHIAZIDE [Suspect]
     Route: 048
     Dates: start: 20100101, end: 20110401
  2. LANTUS [Suspect]
     Indication: TYPE 2 DIABETES MELLITUS
     Route: 058
     Dates: start: 20080101, end: 20110512

REACTIONS (7)
  - NAUSEA [None]
  - ANGINA PECTORIS [None]
  - MYOCARDIAL INFARCTION [None]
  - HYPERHIDROSIS [None]
  - DIZZINESS [None]
  - CHEST PAIN [None]
  - VOMITING [None]
